FAERS Safety Report 8063880-7 (Version None)
Quarter: 2012Q1

REPORT INFORMATION
  Report Type: 
  Country: None (occurrence: None)
  Receive Date: 20120117
  Receipt Date: 20120111
  Transmission Date: 20120608
  Serious: Yes (Other)
  Sender: FDA-Public Use
  Company Number: ACO_28448_2011

PATIENT
  Age: 40 Year
  Sex: Female

DRUGS (4)
  1. RITALIN LA [Concomitant]
  2. AMPYRA [Suspect]
     Indication: MULTIPLE SCLEROSIS
     Dosage: 10 MG, BID, ORAL
     Route: 048
     Dates: start: 20110201, end: 20120101
  3. EFFEXOR [Concomitant]
  4. COPAXONE [Concomitant]

REACTIONS (2)
  - DRUG INEFFECTIVE [None]
  - NEPHROLITHIASIS [None]
